FAERS Safety Report 8774643 (Version 2)
Quarter: 2013Q4

REPORT INFORMATION
  Report Type: Spontaneous
  Country: US (occurrence: US)
  Receive Date: 20120907
  Receipt Date: 20131101
  Transmission Date: 20140711
  Serious: No
  Sender: FDA-Public Use
  Company Number: US-009507513-1209USA001283

PATIENT
  Age: 52 Year
  Sex: Female

DRUGS (3)
  1. PEGINTRON [Suspect]
     Indication: HEPATITIS C
     Dosage: UNK
  2. RIBAVIRIN [Suspect]
  3. TELAPREVIR [Suspect]

REACTIONS (6)
  - Wound [Unknown]
  - Scratch [Unknown]
  - Pruritus [Not Recovered/Not Resolved]
  - Product quality issue [Unknown]
  - Drug dose omission [Unknown]
  - Drug dose omission [Unknown]
